FAERS Safety Report 6951530-X (Version None)
Quarter: 2010Q3

REPORT INFORMATION
  Report Type: 
  Country: None (occurrence: None)
  Receive Date: 20100828
  Receipt Date: 20100331
  Transmission Date: 20110219
  Serious: No
  Sender: FDA-Public Use
  Company Number: US-ABBOTT-10P-163-0635590-00

PATIENT
  Sex: Male
  Weight: 106.69 kg

DRUGS (7)
  1. NIASPAN [Suspect]
     Indication: HYPERLIPIDAEMIA
     Route: 048
     Dates: start: 20050101
  2. NIASPAN [Suspect]
     Route: 048
  3. LIPITOR [Concomitant]
     Indication: PRODUCT USED FOR UNKNOWN INDICATION
     Dosage: TAKEN AS DIRECTED
  4. ASPIRIN [Concomitant]
     Indication: PRODUCT USED FOR UNKNOWN INDICATION
     Dosage: TAKEN AS DIRECTED
  5. FOLTIC [Concomitant]
     Indication: VITAMIN SUPPLEMENTATION
     Dosage: TAKEN AS DIRECTED
  6. VITAMIN E [Concomitant]
     Indication: PRODUCT USED FOR UNKNOWN INDICATION
     Dosage: TAKEN AS DIRECTED
  7. VITAMIN D [Concomitant]
     Indication: PRODUCT USED FOR UNKNOWN INDICATION
     Dosage: TAKEN AS DIRECTED

REACTIONS (1)
  - PARAESTHESIA [None]
